FAERS Safety Report 17715107 (Version 2)
Quarter: 2020Q3

REPORT INFORMATION
  Report Type: Spontaneous
  Country: CA (occurrence: CA)
  Receive Date: 20200427
  Receipt Date: 20200714
  Transmission Date: 20201102
  Serious: Yes (Hospitalization, Other)
  Sender: FDA-Public Use
  Company Number: CA-SAMSUNG BIOEPIS-SB-2020-13634

PATIENT
  Age: 73 Year
  Sex: Female

DRUGS (2)
  1. INFLIXIMAB [Suspect]
     Active Substance: INFLIXIMAB
     Indication: PRODUCT USED FOR UNKNOWN INDICATION
     Route: 042
  2. INFLIXIMAB [Suspect]
     Active Substance: INFLIXIMAB
     Route: 042

REACTIONS (7)
  - Off label use [Unknown]
  - Arrhythmia [Unknown]
  - Inappropriate schedule of product administration [Unknown]
  - Hypertension [Unknown]
  - Dizziness [Unknown]
  - C-reactive protein increased [Unknown]
  - Arthritis [Unknown]
